FAERS Safety Report 23850799 (Version 1)
Quarter: 2024Q2

REPORT INFORMATION
  Report Type: Report from Study
  Country: US (occurrence: US)
  Receive Date: 20240514
  Receipt Date: 20240514
  Transmission Date: 20240716
  Serious: Yes (Other)
  Sender: FDA-Public Use
  Company Number: US-ABBVIE-5754937

PATIENT
  Sex: Female

DRUGS (1)
  1. SKYRIZI [Suspect]
     Active Substance: RISANKIZUMAB-RZAA
     Indication: Psoriatic arthropathy
     Route: 058
     Dates: start: 20231213

REACTIONS (5)
  - Spinal operation [Recovering/Resolving]
  - Blister [Not Recovered/Not Resolved]
  - Pruritus [Not Recovered/Not Resolved]
  - Neck surgery [Recovered/Resolved]
  - Psoriatic arthropathy [Unknown]
